FAERS Safety Report 21899125 (Version 1)
Quarter: 2023Q1

REPORT INFORMATION
  Report Type: Spontaneous
  Country: CZ (occurrence: CZ)
  Receive Date: 20230123
  Receipt Date: 20230123
  Transmission Date: 20230418
  Serious: Yes (Hospitalization, Other)
  Sender: FDA-Public Use
  Company Number: CZ-BoehringerIngelheim-2023-BI-213358

PATIENT
  Age: 62 Year
  Sex: Male
  Weight: 116 kg

DRUGS (12)
  1. JARDIANCE [Suspect]
     Active Substance: EMPAGLIFLOZIN
     Indication: Type 2 diabetes mellitus
     Dates: end: 202003
  2. JARDIANCE [Suspect]
     Active Substance: EMPAGLIFLOZIN
     Dates: start: 202208
  3. ANP [Concomitant]
     Indication: Product used for unknown indication
  4. Prestance 10 [Concomitant]
     Indication: Product used for unknown indication
  5. BISOPROLOL FUMARATE [Concomitant]
     Active Substance: BISOPROLOL FUMARATE
     Indication: Product used for unknown indication
  6. FUROSEMIDE [Concomitant]
     Active Substance: FUROSEMIDE
     Indication: Product used for unknown indication
  7. METFORMIN HYDROCHLORIDE [Concomitant]
     Active Substance: METFORMIN HYDROCHLORIDE
     Indication: Product used for unknown indication
  8. AMARYL [Concomitant]
     Active Substance: GLIMEPIRIDE
     Indication: Product used for unknown indication
     Dates: end: 202001
  9. AMARYL [Concomitant]
     Active Substance: GLIMEPIRIDE
     Dates: start: 202001
  10. Torvac [Concomitant]
     Indication: Product used for unknown indication
  11. LEVEMIR [Concomitant]
     Active Substance: INSULIN DETEMIR
     Indication: Product used for unknown indication
     Dosage: 0-0-0-12
     Dates: start: 201911, end: 202001
  12. LEVEMIR [Concomitant]
     Active Substance: INSULIN DETEMIR
     Dates: start: 202001

REACTIONS (4)
  - Chronic obstructive pulmonary disease [Unknown]
  - Right ventricular failure [Unknown]
  - Respiratory failure [Unknown]
  - Weight increased [Unknown]

NARRATIVE: CASE EVENT DATE: 20190801
